FAERS Safety Report 9308949 (Version 2)
Quarter: 2016Q1

REPORT INFORMATION
  Report Type: Spontaneous
  Country: JP (occurrence: JP)
  Receive Date: 20130524
  Receipt Date: 20160308
  Transmission Date: 20160526
  Serious: Yes (Other)
  Sender: FDA-Public Use
  Company Number: JP-ASTRAZENECA-2013SE35705

PATIENT
  Age: 69 Year
  Sex: Male
  Weight: 48 kg

DRUGS (8)
  1. DIPRIVAN [Suspect]
     Active Substance: PROPOFOL
     Indication: SEDATION
     Dosage: 2 MG/KG/HR
     Route: 042
     Dates: start: 20100429, end: 20100504
  2. DEXMEDETOMIDINE HYDROCHLORIDE. [Interacting]
     Active Substance: DEXMEDETOMIDINE HYDROCHLORIDE
     Indication: SEDATION
     Dosage: 0.2-0.7 MCG/KG/HR
     Route: 042
     Dates: start: 20100729, end: 20100730
  3. DIPRIVAN [Interacting]
     Active Substance: PROPOFOL
     Indication: SEDATION
     Dosage: 2 MG/KG/HR
     Route: 042
     Dates: start: 20100727, end: 20100802
  4. DOPAMINE [Concomitant]
     Active Substance: DOPAMINE\DOPAMINE HYDROCHLORIDE
     Indication: CARDIAC FAILURE
     Route: 065
     Dates: start: 20100429
  5. DEXMEDETOMIDINE HYDROCHLORIDE. [Interacting]
     Active Substance: DEXMEDETOMIDINE HYDROCHLORIDE
     Indication: SEDATION
     Dosage: 0.2 - 0.7 MCG/KG/HR
     Route: 042
     Dates: start: 20100429, end: 20100506
  6. FUROSEMIDE. [Concomitant]
     Active Substance: FUROSEMIDE
     Indication: CARDIAC FAILURE
     Route: 065
     Dates: start: 20100727
  7. FENTANYL. [Concomitant]
     Active Substance: FENTANYL
     Indication: SEDATION
     Dosage: 20 MCG/HR
     Route: 042
     Dates: start: 20100727, end: 20100729
  8. DOBUTAMINE [Concomitant]
     Active Substance: DOBUTAMINE\DOBUTAMINE HYDROCHLORIDE
     Indication: CARDIAC FAILURE
     Route: 065
     Dates: start: 20100727

REACTIONS (2)
  - Pyrexia [Recovered/Resolved]
  - Drug interaction [Unknown]

NARRATIVE: CASE EVENT DATE: 20100501
